FAERS Safety Report 9500456 (Version 1)
Quarter: 2013Q3

REPORT INFORMATION
  Report Type: Spontaneous
  Country: US (occurrence: None)
  Receive Date: 20130903
  Receipt Date: 20130903
  Transmission Date: 20140515
  Serious: Yes (Other)
  Sender: FDA-Public Use
  Company Number: 133463

PATIENT
  Age: 7 Year
  Sex: Male

DRUGS (1)
  1. DAUNORUBICIN HCL INJ. 20MG/4ML - BEDFORD LABS, INC. [Suspect]
     Indication: ACUTE LYMPHOCYTIC LEUKAEMIA
     Route: 042
     Dates: start: 20100611

REACTIONS (1)
  - Alanine aminotransferase increased [None]
